FAERS Safety Report 8138176-5 (Version None)
Quarter: 2012Q1

REPORT INFORMATION
  Report Type: 
  Country: None (occurrence: None)
  Receive Date: 20120215
  Receipt Date: 20120202
  Transmission Date: 20120608
  Serious: Yes (Other)
  Sender: FDA-Public Use
  Company Number: US-BAYER-2012-014202

PATIENT
  Age: 50 Year
  Sex: Female
  Weight: 59 kg

DRUGS (11)
  1. MIDOL PM CAPLETS [Suspect]
  2. HYDROCODONE [Concomitant]
  3. CALCIUM [Concomitant]
  4. ALEVE (CAPLET) [Suspect]
     Dosage: 2 DF, TID
     Route: 048
     Dates: start: 20020101, end: 20030201
  5. IRON [Concomitant]
  6. ACETAMINOPHEN [Concomitant]
     Dosage: UNK
  7. ALEVE (CAPLET) [Suspect]
     Indication: PAIN
     Dosage: 1 DF, QD
     Route: 048
     Dates: start: 20110801
  8. ACETYLSALICYLIC ACID SRT [Suspect]
  9. CINNAMON [Concomitant]
  10. MULTIVITAMIN PREPARATION + MINERAL SUPPLEMENT [Concomitant]
  11. MIDOL PM CAPLETS [Suspect]
     Indication: HEADACHE
     Dosage: 2 DF, TID
     Route: 048
     Dates: start: 20020101, end: 20030101

REACTIONS (2)
  - HAEMORRHAGE [None]
  - HEADACHE [None]
